FAERS Safety Report 13471948 (Version 1)
Quarter: 2017Q2

REPORT INFORMATION
  Report Type: Spontaneous
  Country: US (occurrence: US)
  Receive Date: 20170424
  Receipt Date: 20170424
  Transmission Date: 20170830
  Serious: No
  Sender: FDA-Public Use
  Company Number: US-PFIZER INC-2017177267

PATIENT
  Age: 19 Year
  Sex: Male
  Weight: 86.18 kg

DRUGS (3)
  1. ADVIL [Suspect]
     Active Substance: IBUPROFEN
     Indication: HEADACHE
     Dosage: FOUR 200MG LIQUIGELS TWICE DAILY
     Route: 048
     Dates: start: 20170418, end: 20170419
  2. BENADRYL [Concomitant]
     Active Substance: DIPHENHYDRAMINE HYDROCHLORIDE
     Indication: SLEEP DISORDER
     Dosage: 50MG, ONE AT NIGHT
     Route: 048
  3. ADVIL [Suspect]
     Active Substance: IBUPROFEN
     Indication: NECK PAIN

REACTIONS (1)
  - Urticaria [Not Recovered/Not Resolved]

NARRATIVE: CASE EVENT DATE: 20170418
